FAERS Safety Report 8834234 (Version 2)
Quarter: 2012Q4

REPORT INFORMATION
  Report Type: 
  Country: US (occurrence: US)
  Receive Date: 20121010
  Receipt Date: 20121210
  Transmission Date: 20130627
  Serious: Yes (Other)
  Sender: FDA-Public Use
  Company Number: US-ASTRAZENECA-2012SE75743

PATIENT
  Age: 53 Year
  Sex: Female
  Weight: 57.6 kg

DRUGS (8)
  1. FASLODEX [Suspect]
     Indication: BREAST CANCER METASTATIC
     Route: 030
     Dates: start: 201109, end: 201110
  2. FASLODEX [Suspect]
     Indication: BREAST CANCER METASTATIC
     Route: 030
     Dates: start: 201111, end: 20121001
  3. FASLODEX [Suspect]
     Indication: BREAST CANCER METASTATIC
     Route: 030
     Dates: start: 20121001
  4. BENICAR [Concomitant]
     Indication: HYPERCHOLESTEROLAEMIA
     Route: 048
  5. LOVAZA [Concomitant]
     Indication: HYPERCHOLESTEROLAEMIA
     Route: 048
  6. MELCHOL [Concomitant]
  7. SOMA [Concomitant]
  8. KCL [Concomitant]
     Indication: BLOOD POTASSIUM
     Route: 048

REACTIONS (7)
  - Cough [Recovered/Resolved]
  - Agitation [Recovered/Resolved]
  - Myalgia [Recovered/Resolved]
  - Throat irritation [Recovered/Resolved]
  - Erythema [Recovered/Resolved]
  - Erythema [Recovered/Resolved]
  - Headache [Recovered/Resolved]
